FAERS Safety Report 6227860-6 (Version None)
Quarter: 2009Q2

REPORT INFORMATION
  Report Type: 
  Country: None (occurrence: None)
  Receive Date: 20090612
  Receipt Date: 20090605
  Transmission Date: 20091009
  Serious: Yes (Other)
  Sender: FDA-Public Use
  Company Number: A0790393A

PATIENT
  Sex: Female

DRUGS (7)
  1. IMITREX [Suspect]
     Route: 065
  2. CYMBALTA [Concomitant]
  3. NEURONTIN [Concomitant]
  4. THYROID MEDICATION [Concomitant]
  5. HYDROCORTISONE [Concomitant]
  6. AMBIEN [Concomitant]
  7. VICODIN [Concomitant]

REACTIONS (7)
  - APHASIA [None]
  - COMA [None]
  - CONVULSION [None]
  - DELIRIUM [None]
  - DISTURBANCE IN ATTENTION [None]
  - RESPIRATORY ARREST [None]
  - SEROTONIN SYNDROME [None]
